FAERS Safety Report 6209642-4 (Version None)
Quarter: 2009Q2

REPORT INFORMATION
  Report Type: 
  Country: None (occurrence: None)
  Receive Date: 20090601
  Receipt Date: 20090522
  Transmission Date: 20091009
  Serious: Yes (Hospitalization, Other)
  Sender: FDA-Public Use
  Company Number: ZA-MEDIMMUNE-MEDI-0008403

PATIENT
  Sex: Female

DRUGS (3)
  1. SYNAGIS [Suspect]
     Indication: INFECTION PROPHYLAXIS
     Route: 030
     Dates: start: 20090301, end: 20090301
  2. SYNAGIS [Suspect]
     Dates: start: 20090420
  3. LEVOTHYROXINE SODIUM [Concomitant]
     Indication: HYPOTHYROIDISM
     Dosage: 0.5 UG ALTERNATING WITH 0.25 UG DAILY
     Route: 048
     Dates: start: 20080101

REACTIONS (3)
  - BRONCHIOLITIS [None]
  - OTITIS MEDIA [None]
  - RESPIRATORY SYNCYTIAL VIRUS INFECTION [None]
